FAERS Safety Report 21878313 (Version 1)
Quarter: 2023Q1

REPORT INFORMATION
  Report Type: Report from Study
  Country: US (occurrence: US)
  Receive Date: 20230118
  Receipt Date: 20230118
  Transmission Date: 20230417
  Serious: No
  Sender: FDA-Public Use
  Company Number: US-ABBVIE-4242349

PATIENT
  Sex: Female

DRUGS (4)
  1. HUMIRA [Suspect]
     Active Substance: ADALIMUMAB
     Indication: Uveitis
     Dosage: FREQUENCY TEXT: 40 MG/0.4 ML EVERY 14 YEARS
     Route: 058
     Dates: start: 20211214
  2. HUMIRA [Suspect]
     Active Substance: ADALIMUMAB
     Dosage: DAY 1 (COMPLETE)
     Route: 058
  3. HUMIRA [Suspect]
     Active Substance: ADALIMUMAB
     Dosage: DAY 8 (COMPLETE)
  4. HUMIRA [Suspect]
     Active Substance: ADALIMUMAB
     Dosage: EVERY 14 DAYS THEREAFTER (CURRENT)

REACTIONS (1)
  - COVID-19 [Unknown]
